FAERS Safety Report 8967875 (Version 1)
Quarter: 2012Q4

REPORT INFORMATION
  Report Type: Spontaneous
  Country: US (occurrence: None)
  Receive Date: 20121213
  Receipt Date: 20121213
  Transmission Date: 20130627
  Serious: No
  Sender: FDA-Public Use
  Company Number: None

PATIENT
  Age: 51 Year
  Sex: Male
  Weight: 83.01 kg

DRUGS (3)
  1. DORZOLAMIDE HCL AND TIMOLOL MALEATE [Suspect]
     Indication: INTRAOCULAR PRESSURE INCREASED
     Route: 031
     Dates: start: 20121130, end: 20121207
  2. NEVENAC OPHTHALMIC SOLUTION [Concomitant]
  3. LOTEMAX OPHTHALMIC SUSPENSION [Concomitant]

REACTIONS (2)
  - Pain [None]
  - Burning sensation [None]
